FAERS Safety Report 9901604 (Version 1)
Quarter: 2014Q1

REPORT INFORMATION
  Report Type: Spontaneous
  Country: US (occurrence: US)
  Receive Date: 20140217
  Receipt Date: 20140217
  Transmission Date: 20141002
  Serious: No
  Sender: FDA-Public Use
  Company Number: US-GILEAD-2011-0047638

PATIENT
  Age: 58 Year
  Sex: Male

DRUGS (3)
  1. LETAIRIS [Suspect]
     Indication: PRODUCT USED FOR UNKNOWN INDICATION
     Dosage: 10 MG, UNK
     Route: 048
  2. VENTAVIS [Concomitant]
  3. ADCIRCA [Concomitant]

REACTIONS (4)
  - Fatigue [Unknown]
  - Myalgia [Unknown]
  - Dizziness [Unknown]
  - Headache [Unknown]
